FAERS Safety Report 8548685-2 (Version None)
Quarter: 2012Q3

REPORT INFORMATION
  Report Type: 
  Country: None (occurrence: None)
  Receive Date: 20120730
  Receipt Date: 20120718
  Transmission Date: 20120928
  Serious: Yes (Hospitalization)
  Sender: FDA-Public Use
  Company Number: PHHY2012JP060097

PATIENT
  Age: 88 Year
  Sex: Male
  Weight: 32 kg

DRUGS (3)
  1. CARVEDILOL [Concomitant]
  2. VALSARTAN [Suspect]
     Dosage: 40 MG/DAY
  3. NITROGLYCERIN [Concomitant]

REACTIONS (15)
  - WHITE BLOOD CELL COUNT INCREASED [None]
  - DECREASED APPETITE [None]
  - NAUSEA [None]
  - LETHARGY [None]
  - VOMITING [None]
  - BLOOD GLUCOSE DECREASED [None]
  - C-REACTIVE PROTEIN INCREASED [None]
  - HYPOTHYROIDISM [None]
  - PYREXIA [None]
  - HYPERKALAEMIA [None]
  - SECONDARY ADRENOCORTICAL INSUFFICIENCY [None]
  - PULMONARY HYPERTENSION [None]
  - FLUID OVERLOAD [None]
  - HYPONATRAEMIA [None]
  - INFECTION [None]
